FAERS Safety Report 21627954 (Version 1)
Quarter: 2022Q4

REPORT INFORMATION
  Report Type: Spontaneous
  Country: FR (occurrence: None)
  Receive Date: 20221122
  Receipt Date: 20221122
  Transmission Date: 20230113
  Serious: Yes (Other)
  Sender: FDA-Public Use
  Company Number: 2022A374091

PATIENT
  Age: 85 Year
  Sex: Male
  Weight: 80 kg

DRUGS (2)
  1. TICAGRELOR [Suspect]
     Active Substance: TICAGRELOR
     Indication: Myocardial infarction
     Route: 048
     Dates: start: 20220225
  2. CARVEDILOL [Suspect]
     Active Substance: CARVEDILOL
     Indication: Myocardial infarction
     Route: 048

REACTIONS (2)
  - Sense of oppression [Not Recovered/Not Resolved]
  - Dyspnoea [Not Recovered/Not Resolved]

NARRATIVE: CASE EVENT DATE: 20220228
